FAERS Safety Report 25584500 (Version 1)
Quarter: 2025Q3

REPORT INFORMATION
  Report Type: Spontaneous
  Country: US (occurrence: US)
  Receive Date: 20250721
  Receipt Date: 20250721
  Transmission Date: 20251020
  Serious: No
  Sender: SANOFI AVENTIS
  Company Number: US-SA-2025SA198410

PATIENT
  Age: 52 Year
  Sex: Female
  Weight: 109.09 kg

DRUGS (6)
  1. DUPIXENT [Suspect]
     Active Substance: DUPILUMAB
     Indication: Dermatitis atopic
     Dosage: 300 MG, QOW
     Route: 058
  2. CLARITIN-D 12 HOUR [Concomitant]
     Active Substance: LORATADINE\PSEUDOEPHEDRINE SULFATE
  3. DOXYCYCLINE HYCLATE [Concomitant]
     Active Substance: DOXYCYCLINE HYCLATE
  4. MYRBETRIQ [Concomitant]
     Active Substance: MIRABEGRON
  5. LEVOTHYROXINE [Concomitant]
     Active Substance: LEVOTHYROXINE
  6. NYSTATIN [Concomitant]
     Active Substance: NYSTATIN

REACTIONS (11)
  - Hypoaesthesia [Unknown]
  - Stress [Unknown]
  - Injection site mass [Unknown]
  - Diarrhoea [Unknown]
  - Headache [Unknown]
  - Anxiety [Unknown]
  - Dizziness postural [Unknown]
  - Injection site pain [Unknown]
  - Product preparation error [Unknown]
  - Dermatitis atopic [Recovering/Resolving]
  - Arthralgia [Unknown]

NARRATIVE: CASE EVENT DATE: 20250101
